FAERS Safety Report 10009627 (Version 1)
Quarter: 2014Q1

REPORT INFORMATION
  Report Type: Spontaneous
  Country: US (occurrence: US)
  Receive Date: 20140312
  Receipt Date: 20140312
  Transmission Date: 20141002
  Serious: No
  Sender: FDA-Public Use
  Company Number: US-INCYTE CORPORATION-2012IN001828

PATIENT
  Age: 74 Year
  Sex: Male

DRUGS (10)
  1. JAKAFI [Suspect]
     Indication: MYELOFIBROSIS
     Dosage: 20 MG, BID
     Route: 048
     Dates: start: 201208
  2. METOPROLOL [Concomitant]
     Dosage: 75 MG, QD
  3. LOSARTAN [Concomitant]
     Dosage: 50 MG, QD
  4. FLOMAX [Concomitant]
     Dosage: 0.4 MG, QD
  5. ALLOPURINOL [Concomitant]
     Dosage: 500 MG, QD
  6. AVODART [Concomitant]
     Dosage: 0.5 MG, QD
  7. ASPIRIN [Concomitant]
     Dosage: 81 MG, UNK
  8. HYDROXYUREA [Concomitant]
     Dosage: 500 MG, QD
  9. AMLODIPINE [Concomitant]
     Dosage: 5 MG, QD
  10. SPIRIVA [Concomitant]
     Dosage: 1 PUFF DAILY

REACTIONS (1)
  - Dysgeusia [Not Recovered/Not Resolved]
